FAERS Safety Report 11402966 (Version 1)
Quarter: 2015Q3

REPORT INFORMATION
  Report Type: Spontaneous
  Country: US (occurrence: None)
  Receive Date: 20150820
  Receipt Date: 20150820
  Transmission Date: 20151125
  Serious: Yes (Hospitalization)
  Sender: FDA-Public Use
  Company Number: None

PATIENT
  Age: 66 Year
  Sex: Male
  Weight: 106 kg

DRUGS (1)
  1. CARBAMAZEPINE. [Suspect]
     Active Substance: CARBAMAZEPINE
     Indication: BIPOLAR DISORDER
     Route: 048
     Dates: start: 20150218, end: 20150610

REACTIONS (5)
  - Hyperglycaemia [None]
  - Hepatic fibrosis [None]
  - Hyponatraemia [None]
  - Hepatic steatosis [None]
  - Hyperammonaemia [None]

NARRATIVE: CASE EVENT DATE: 20150609
